FAERS Safety Report 23347517 (Version 5)
Quarter: 2024Q3

REPORT INFORMATION
  Report Type: Spontaneous
  Country: US (occurrence: US)
  Receive Date: 20231228
  Receipt Date: 20240801
  Transmission Date: 20241017
  Serious: Yes (Hospitalization, Other)
  Sender: PFIZER
  Company Number: US-PFIZER INC-202300449344

PATIENT
  Age: 38 Year
  Sex: Male
  Weight: 90.72 kg

DRUGS (4)
  1. OXBRYTA [Suspect]
     Active Substance: VOXELOTOR
     Indication: Sickle cell anaemia
     Dosage: 500 MG, 3 TABLETS, ONCE DAILY
     Route: 048
     Dates: start: 20231207
  2. OXBRYTA [Suspect]
     Active Substance: VOXELOTOR
     Indication: Sickle cell disease
     Dosage: THREE PILLS A DAY
     Route: 048
  3. OXBRYTA [Suspect]
     Active Substance: VOXELOTOR
     Dosage: 500 MG, 3 TABLETS, ONCE DAILY
     Route: 048
     Dates: start: 20230821
  4. MS CONTIN [Concomitant]
     Active Substance: MORPHINE SULFATE

REACTIONS (8)
  - Haemoglobin increased [Unknown]
  - Condition aggravated [Unknown]
  - Periorbital swelling [Not Recovered/Not Resolved]
  - Haemoglobin decreased [Recovering/Resolving]
  - Illness [Unknown]
  - Limb injury [Unknown]
  - Rash [Unknown]
  - Product dose omission issue [Unknown]

NARRATIVE: CASE EVENT DATE: 20240101
